FAERS Safety Report 6692763-X (Version None)
Quarter: 2010Q2

REPORT INFORMATION
  Report Type: 
  Country: None (occurrence: None)
  Receive Date: 20100422
  Receipt Date: 20100419
  Transmission Date: 20101027
  Serious: Yes (Death, Hospitalization)
  Sender: FDA-Public Use
  Company Number: PHHO2010BR03745

PATIENT
  Sex: Male
  Weight: 79.4 kg

DRUGS (1)
  1. CERTICAN [Suspect]
     Indication: LIVER TRANSPLANT
     Dosage: 4 MG
     Route: 048
     Dates: start: 20090908, end: 20100409

REACTIONS (20)
  - ASTHENIA [None]
  - CARDIO-RESPIRATORY ARREST [None]
  - CHILLS [None]
  - DYSPNOEA [None]
  - FATIGUE [None]
  - GENERAL PHYSICAL HEALTH DETERIORATION [None]
  - HYPOTENSION [None]
  - INFLAMMATION [None]
  - INTERSTITIAL LUNG DISEASE [None]
  - LUNG INFECTION [None]
  - LUNG INFILTRATION [None]
  - PNEUMONIA [None]
  - PYREXIA [None]
  - RESPIRATORY DISTRESS [None]
  - RESPIRATORY FAILURE [None]
  - SHOCK [None]
  - THORACIC CAVITY DRAINAGE [None]
  - THORACOTOMY [None]
  - TRAUMATIC LUNG INJURY [None]
  - TUBERCULOSIS [None]
